FAERS Safety Report 8104249-6 (Version None)
Quarter: 2012Q1

REPORT INFORMATION
  Report Type: 
  Country: None (occurrence: None)
  Receive Date: 20120130
  Receipt Date: 20120117
  Transmission Date: 20120608
  Serious: Yes (Other)
  Sender: FDA-Public Use
  Company Number: 1000027441

PATIENT
  Age: 50 Year
  Sex: Female

DRUGS (3)
  1. PREDNISONE [Suspect]
     Dosage: 1 DOSAGE FORM (1 DOSAGE FORMS, 1 IN 1 D)
  2. PLAQUENIL [Concomitant]
  3. ESCITALOPRAM [Suspect]
     Dosage: 0.5 DOSAGE FORM (0.5 DOSAGE FORMS, 1 IN 1 D), ORAL
     Route: 048
     Dates: start: 20111231

REACTIONS (2)
  - MALAISE [None]
  - EXTRASYSTOLES [None]
